FAERS Safety Report 8493071-7 (Version None)
Quarter: 2012Q3

REPORT INFORMATION
  Report Type: 
  Country: None (occurrence: None)
  Receive Date: 20120706
  Receipt Date: 20120621
  Transmission Date: 20120928
  Serious: Yes (Life-Threatening, Hospitalization, Disabling)
  Sender: FDA-Public Use
  Company Number: US-WATSON-2012-07576

PATIENT
  Sex: Male

DRUGS (7)
  1. SAXAGLIPTIN [Suspect]
     Indication: TYPE 2 DIABETES MELLITUS
     Dosage: UNK
     Route: 065
     Dates: start: 20110414, end: 20120417
  2. PLACEBO [Suspect]
     Indication: TYPE 2 DIABETES MELLITUS
     Dosage: UNK
     Route: 065
     Dates: start: 20110414, end: 20120417
  3. LANTUS [Suspect]
     Indication: TYPE 2 DIABETES MELLITUS
     Dosage: 35 INTERNATIONAL UNIT
     Route: 065
  4. SPIRONOLACTONE [Concomitant]
     Indication: PRODUCT USED FOR UNKNOWN INDICATION
     Dosage: UNK
     Route: 065
     Dates: start: 20111202
  5. ASPIRIN [Concomitant]
     Indication: PRODUCT USED FOR UNKNOWN INDICATION
     Dosage: UNK
     Route: 065
  6. GLIPIZIDE [Suspect]
     Indication: TYPE 2 DIABETES MELLITUS
     Dosage: UNK
     Route: 048
  7. REGLAN [Concomitant]
     Dosage: UNK
     Route: 065
     Dates: start: 20120302

REACTIONS (6)
  - PULSELESS ELECTRICAL ACTIVITY [None]
  - BURNS SECOND DEGREE [None]
  - PLEURAL EFFUSION [None]
  - HYPOGLYCAEMIA [None]
  - FLUID OVERLOAD [None]
  - HYPERKALAEMIA [None]
